FAERS Safety Report 9127932 (Version 1)
Quarter: 2013Q1

REPORT INFORMATION
  Report Type: Spontaneous
  Country: US (occurrence: US)
  Receive Date: 20130228
  Receipt Date: 20130228
  Transmission Date: 20140127
  Serious: No
  Sender: FDA-Public Use
  Company Number: US-PFIZER INC-2013070440

PATIENT
  Age: 55 Year
  Sex: Female
  Weight: 75 kg

DRUGS (1)
  1. ESTRING [Suspect]
     Indication: OESTROGEN THERAPY
     Dosage: UNK
     Route: 067
     Dates: end: 201302

REACTIONS (3)
  - Hypersensitivity [Unknown]
  - Vulvovaginal pain [Unknown]
  - Drug ineffective [Unknown]
